FAERS Safety Report 21962438 (Version 3)
Quarter: 2023Q2

REPORT INFORMATION
  Report Type: Spontaneous
  Country: US (occurrence: US)
  Receive Date: 20230207
  Receipt Date: 20230403
  Transmission Date: 20230722
  Serious: Yes (Life-Threatening, Hospitalization, Other)
  Sender: FDA-Public Use
  Company Number: US-Vifor (International) Inc.-VIT-2023-00833

PATIENT
  Age: 52 Year
  Sex: Female
  Weight: 111 kg

DRUGS (3)
  1. MIRCERA [Suspect]
     Active Substance: METHOXY POLYETHYLENE GLYCOL-EPOETIN BETA
     Indication: Anaemia
     Route: 042
     Dates: start: 20221216
  2. HEPARIN [Concomitant]
     Active Substance: HEPARIN SODIUM
     Dates: start: 20221216
  3. SODIUM CHLORIDE [Concomitant]
     Active Substance: SODIUM CHLORIDE
     Dates: start: 20221216

REACTIONS (4)
  - Myocardial infarction [Recovering/Resolving]
  - Unresponsive to stimuli [Recovering/Resolving]
  - Blood pressure increased [Recovering/Resolving]
  - Cardiac arrest [Recovering/Resolving]

NARRATIVE: CASE EVENT DATE: 20221216
